FAERS Safety Report 9337084 (Version 1)
Quarter: 2013Q2

REPORT INFORMATION
  Report Type: Spontaneous
  Country: US (occurrence: US)
  Receive Date: 20130607
  Receipt Date: 20130607
  Transmission Date: 20140414
  Serious: Yes (Hospitalization)
  Sender: FDA-Public Use
  Company Number: US-UCBSA-088154

PATIENT
  Age: 11 Year
  Sex: Female

DRUGS (3)
  1. CIMZIA [Suspect]
     Indication: COLITIS
     Dates: start: 2012
  2. PREDNISONE [Concomitant]
  3. MEDROL [Concomitant]

REACTIONS (10)
  - Cushing^s syndrome [Unknown]
  - Upper respiratory tract infection [Unknown]
  - Oesophageal candidiasis [Unknown]
  - Gastrointestinal haemorrhage [Unknown]
  - Arthralgia [Unknown]
  - Abdominal pain [Unknown]
  - Haemorrhoids [Unknown]
  - Haematochezia [Unknown]
  - Anal fissure [Unknown]
  - Inappropriate schedule of drug administration [Unknown]
